FAERS Safety Report 5147967-4 (Version None)
Quarter: 2006Q4

REPORT INFORMATION
  Report Type: 
  Country: None (occurrence: None)
  Receive Date: 20061110
  Receipt Date: 20061101
  Transmission Date: 20070319
  Serious: Yes (Other)
  Sender: FDA-Public Use
  Company Number: US-MERCK-0611USA01089

PATIENT
  Age: 46 Year
  Sex: Male

DRUGS (3)
  1. CRIXIVAN [Suspect]
     Indication: HIV INFECTION
     Route: 048
     Dates: start: 19960101, end: 20060101
  2. COMBIVIR [Concomitant]
     Route: 065
  3. RITONAVIR [Concomitant]
     Route: 065

REACTIONS (3)
  - FACIAL WASTING [None]
  - LIPODYSTROPHY ACQUIRED [None]
  - LIPOHYPERTROPHY [None]
